FAERS Safety Report 10159826 (Version 1)
Quarter: 2014Q2

REPORT INFORMATION
  Report Type: Spontaneous
  Country: US (occurrence: US)
  Receive Date: 20140508
  Receipt Date: 20140508
  Transmission Date: 20141212
  Serious: No
  Sender: FDA-Public Use
  Company Number: US-GLAXOSMITHKLINE-A1033761A

PATIENT
  Age: 63 Year
  Sex: Female
  Weight: 60.9 kg

DRUGS (6)
  1. TYKERB [Suspect]
     Indication: BREAST CANCER
     Dosage: 1000MG PER DAY
     Route: 048
     Dates: start: 20130703
  2. HERCEPTIN [Concomitant]
  3. FEMARA [Concomitant]
  4. VITAMIN E [Concomitant]
  5. FISH OIL [Concomitant]
  6. CALCIUM + VITAMIN D [Concomitant]

REACTIONS (7)
  - Abdominal pain upper [Recovered/Resolved]
  - Diarrhoea [Recovered/Resolved]
  - Dyspepsia [Unknown]
  - Pruritus [Recovering/Resolving]
  - Photosensitivity reaction [Recovering/Resolving]
  - Neoplasm progression [Not Recovered/Not Resolved]
  - Surgery [Unknown]
